FAERS Safety Report 4474590-7 (Version None)
Quarter: 2004Q4

REPORT INFORMATION
  Report Type: 
  Country: None (occurrence: None)
  Receive Date: 20041012
  Receipt Date: 20041005
  Transmission Date: 20050328
  Serious: Yes (Death)
  Sender: FDA-Public Use
  Company Number: 2004-120944-NL

PATIENT
  Age: 56 Year
  Sex: Male

DRUGS (4)
  1. MIRTAZAPINE [Suspect]
     Dosage: DF
  2. DIAZEPAM [Suspect]
     Dosage: DF
  3. SILDENAFIL [Suspect]
     Dosage: DF
  4. ALCOHOL [Suspect]

REACTIONS (1)
  - TOXICOLOGIC TEST ABNORMAL [None]
